FAERS Safety Report 20375342 (Version 1)
Quarter: 2022Q1

REPORT INFORMATION
  Report Type: Spontaneous
  Country: US (occurrence: None)
  Receive Date: 20220124
  Receipt Date: 20220124
  Transmission Date: 20220423
  Serious: Yes (Death, Other)
  Sender: FDA-Public Use
  Company Number: None

PATIENT
  Age: 29 Year
  Sex: Male
  Weight: 70 kg

DRUGS (13)
  1. CILGAVIMAB\TIXAGEVIMAB [Suspect]
     Active Substance: CILGAVIMAB\TIXAGEVIMAB
     Indication: COVID-19 prophylaxis
     Dosage: 150MG ONCE TIME
     Route: 030
     Dates: start: 20220121, end: 20220121
  2. TACROLIMUS IR [Concomitant]
     Dates: start: 20220113, end: 20220122
  3. MYCOPHENOLATE MOFETIL [Concomitant]
     Active Substance: MYCOPHENOLATE MOFETIL
     Dates: start: 20220113, end: 20220122
  4. PREDNISONE [Concomitant]
     Active Substance: PREDNISONE
     Dates: start: 20220113, end: 20220122
  5. GABAPENTIN [Concomitant]
     Active Substance: GABAPENTIN
     Dates: start: 20220116, end: 20220122
  6. URSODIOL [Concomitant]
     Active Substance: URSODIOL
     Dates: start: 20220117, end: 20220122
  7. PANTOPRAZOLE [Concomitant]
     Active Substance: PANTOPRAZOLE
     Dates: end: 20220122
  8. AMLODIPINE [Concomitant]
     Active Substance: AMLODIPINE BESYLATE
  9. HEPARIN SC [Concomitant]
     Dates: start: 20220110, end: 20220122
  10. ZOSYN [Concomitant]
     Active Substance: PIPERACILLIN SODIUM\TAZOBACTAM SODIUM
     Dates: start: 20220111, end: 20220122
  11. ACYCLOVIR [Concomitant]
     Active Substance: ACYCLOVIR
     Dates: start: 20220118, end: 20220122
  12. FLUCONAZOLE [Concomitant]
     Active Substance: FLUCONAZOLE
     Dates: start: 20220118, end: 20220122
  13. VANCOMYCIN |V [Concomitant]
     Dates: end: 20220122

REACTIONS (2)
  - Cerebellar haemorrhage [None]
  - Intraventricular haemorrhage [None]

NARRATIVE: CASE EVENT DATE: 20220121
